FAERS Safety Report 6782535-X (Version None)
Quarter: 2010Q2

REPORT INFORMATION
  Report Type: 
  Country: None (occurrence: None)
  Receive Date: 20100621
  Receipt Date: 20100614
  Transmission Date: 20101027
  Serious: Yes (Hospitalization)
  Sender: FDA-Public Use
  Company Number: US-WYE-H15487010

PATIENT
  Sex: Male
  Weight: 117.59 kg

DRUGS (1)
  1. TORISEL [Suspect]
     Indication: RENAL CELL CARCINOMA
     Route: 042
     Dates: start: 20100305, end: 20100526

REACTIONS (5)
  - COUGH [None]
  - DYSPNOEA [None]
  - LUNG DISORDER [None]
  - PYREXIA [None]
  - RESPIRATORY TRACT INFLAMMATION [None]
